FAERS Safety Report 4791986-4 (Version None)
Quarter: 2005Q4

REPORT INFORMATION
  Report Type: 
  Country: None (occurrence: None)
  Receive Date: 20051007
  Receipt Date: 20051003
  Transmission Date: 20060501
  Serious: Yes (Hospitalization, Other)
  Sender: FDA-Public Use
  Company Number: US-ABBOTT-05P-163-0312721-00

PATIENT
  Sex: Female
  Weight: 90.8 kg

DRUGS (5)
  1. HUMIRA 40 MG/ 0.8 ML PRE-FILLED SYRINGE [Suspect]
     Indication: RHEUMATOID ARTHRITIS
     Route: 058
     Dates: start: 20050801
  2. PREDNISONE [Concomitant]
     Indication: RHEUMATOID ARTHRITIS
     Route: 048
     Dates: start: 20040901
  3. METHOTREXATE [Concomitant]
     Indication: RHEUMATOID ARTHRITIS
     Route: 048
     Dates: start: 20050501
  4. ROSIGLITAZONE MALEATE [Concomitant]
     Indication: DIABETES MELLITUS
     Route: 048
  5. NOVOLOG [Concomitant]
     Indication: DIABETES MELLITUS
     Dosage: 34 UNITS IN AM 12 UNITS AT NOON AND 20 UNITS BEFORE SUPPER
     Route: 058

REACTIONS (4)
  - ANGINA UNSTABLE [None]
  - CHEST DISCOMFORT [None]
  - DYSPNOEA [None]
  - OEDEMA PERIPHERAL [None]
